FAERS Safety Report 7560923-1 (Version None)
Quarter: 2011Q2

REPORT INFORMATION
  Report Type: 
  Country: None (occurrence: None)
  Receive Date: 20110621
  Receipt Date: 20110310
  Transmission Date: 20111010
  Serious: No
  Sender: FDA-Public Use
  Company Number: US-ASTRAZENECA-2011SE13848

PATIENT
  Age: 44 Year
  Sex: Female

DRUGS (1)
  1. ATACAND [Suspect]
     Route: 048

REACTIONS (4)
  - VIOLENCE-RELATED SYMPTOM [None]
  - AGGRESSION [None]
  - SELF INJURIOUS BEHAVIOUR [None]
  - DRUG DOSE OMISSION [None]
